FAERS Safety Report 6028694-8 (Version None)
Quarter: 2009Q1

REPORT INFORMATION
  Report Type: 
  Country: None (occurrence: None)
  Receive Date: 20090102
  Receipt Date: 20081220
  Transmission Date: 20090719
  Serious: Yes (Other)
  Sender: FDA-Public Use
  Company Number: 1000003333

PATIENT
  Age: 49 Year
  Sex: Female

DRUGS (3)
  1. ESCITALOPRAM OXALATE [Suspect]
     Dosage: 1000 MG (1000 MG, ONCE), ORAL
     Route: 048
     Dates: start: 20081220, end: 20081220
  2. PARACODIN N (2.5 MILLIGRAM/MILLILITERS, SYRUP) [Suspect]
     Dosage: 120 MG (120 MG, ONCE), ORAL
     Route: 048
     Dates: start: 20081220, end: 20081220
  3. ALCOHOL [Suspect]
     Dosage: ONCE, ORAL
     Route: 048
     Dates: start: 20081220, end: 20081220

REACTIONS (5)
  - AGITATION [None]
  - ALCOHOL POISONING [None]
  - INTENTIONAL OVERDOSE [None]
  - SUICIDE ATTEMPT [None]
  - SYSTOLIC HYPERTENSION [None]
